FAERS Safety Report 8850656 (Version 2)
Quarter: 2013Q2

REPORT INFORMATION
  Report Type: Report from Study
  Country: JP (occurrence: JP)
  Receive Date: 20121019
  Receipt Date: 20130528
  Transmission Date: 20140414
  Serious: Yes (Other)
  Sender: FDA-Public Use
  Company Number: JP-009507513-2012SP007456

PATIENT
  Age: 73 Year
  Sex: Female
  Weight: 58 kg

DRUGS (16)
  1. PEGINTRON [Suspect]
     Indication: CHRONIC HEPATITIS C
     Dosage: 1.5 MICROGRAM PER KILOGRAM, QW
     Route: 058
     Dates: start: 20110205, end: 20120105
  2. PEGINTRON [Suspect]
     Dosage: 1.5 MICROGRAM PER KILOGRAM, QW
     Route: 058
     Dates: start: 20120124, end: 20120320
  3. PEGINTRON [Suspect]
     Dosage: 0.75 MICROGRAM PER KILOGRAM, QW
     Route: 058
     Dates: start: 20120321, end: 20120425
  4. PEGINTRON [Suspect]
     Dosage: 1.2 MICROGRAM PER KILOGRAM, QW
     Route: 058
     Dates: start: 20120426, end: 20120521
  5. REBETOL [Suspect]
     Indication: CHRONIC HEPATITIS C
     Dosage: 800 MG, QD
     Route: 048
     Dates: start: 20111205, end: 20111227
  6. REBETOL [Suspect]
     Dosage: 400 MG, QD
     Route: 048
     Dates: start: 20111227, end: 20120105
  7. REBETOL [Suspect]
     Dosage: 400 MG, QD
     Route: 048
     Dates: start: 20120124, end: 20120404
  8. REBETOL [Suspect]
     Dosage: 200 MG, QD
     Route: 048
     Dates: start: 20120405, end: 20120521
  9. TELAVIC [Suspect]
     Indication: CHRONIC HEPATITIS C
     Dosage: 2250 MG, QD
     Route: 048
     Dates: start: 20111205, end: 20120105
  10. TELAVIC [Suspect]
     Dosage: 1500 MG, QD
     Route: 048
     Dates: start: 20120124, end: 20120227
  11. PARIET [Concomitant]
     Indication: PROPHYLAXIS
     Dosage: 10 MG, QD, POR
     Route: 048
     Dates: start: 20111205, end: 20120521
  12. TALION (BEPOTASTINE BESYLATE) [Concomitant]
     Indication: PROPHYLAXIS
     Dosage: 20 MG, QD
     Route: 048
     Dates: start: 20111205, end: 20120521
  13. VOLTAREN [Concomitant]
     Indication: PROPHYLAXIS
     Dosage: 25 MG, PRN
     Route: 054
     Dates: start: 20111205, end: 20120521
  14. NEXIUM [Concomitant]
     Indication: PROPHYLAXIS
     Dosage: 20 MG, QD
     Route: 048
     Dates: start: 20111221, end: 20120521
  15. MIYA BM [Concomitant]
     Indication: PROPHYLAXIS
     Dosage: 6 DF, QD
     Route: 048
     Dates: start: 20120314, end: 20120314
  16. POSTERISAN [Concomitant]
     Indication: ANAL FISTULA
     Dosage: PROPER QUANTITY/DAY
     Route: 061
     Dates: start: 20120317, end: 20120317

REACTIONS (2)
  - Anaemia [Recovered/Resolved]
  - Anaemia [Not Recovered/Not Resolved]
